FAERS Safety Report 20503574 (Version 1)
Quarter: 2022Q1

REPORT INFORMATION
  Report Type: Spontaneous
  Country: US (occurrence: US)
  Receive Date: 20220222
  Receipt Date: 20220222
  Transmission Date: 20220424
  Serious: No
  Sender: FDA-Public Use
  Company Number: US-MYLANLABS-2022M1006012

PATIENT
  Age: 64 Year
  Sex: Male
  Weight: 95.2 kg

DRUGS (5)
  1. PROCTOFOAM HC [Suspect]
     Active Substance: HYDROCORTISONE ACETATE\PRAMOXINE HYDROCHLORIDE
     Indication: Haemorrhoids
     Dosage: 1 PERCENT, Q5D
     Route: 054
     Dates: start: 20220118
  2. LEVOTHYROXINE [Concomitant]
     Active Substance: LEVOTHYROXINE
     Dosage: 88 MICROGRAM, QD
     Route: 048
  3. NAPROXEN [Concomitant]
     Active Substance: NAPROXEN
     Dosage: 500 MILLIGRAM, BID
     Route: 048
  4. Clavix [Concomitant]
     Dosage: 75 MILLIGRAM, PM (ONCE AT NIGHT)
     Route: 048
  5. ECOTRIN [Concomitant]
     Active Substance: ASPIRIN
     Dosage: 35 MILLIGRAM, QD
     Route: 048

REACTIONS (3)
  - Product use issue [Unknown]
  - Product leakage [Unknown]
  - Product quality issue [Unknown]

NARRATIVE: CASE EVENT DATE: 20220118
